FAERS Safety Report 11354422 (Version 10)
Quarter: 2019Q3

REPORT INFORMATION
  Report Type: Spontaneous
  Country: US (occurrence: US)
  Receive Date: 20150807
  Receipt Date: 20190930
  Transmission Date: 20191004
  Serious: Yes (Hospitalization, Other)
  Sender: FDA-Public Use
  Company Number: US-PFIZER INC-2015262330

PATIENT
  Age: 83 Year
  Sex: Female
  Weight: 98 kg

DRUGS (12)
  1. REVATIO [Suspect]
     Active Substance: SILDENAFIL CITRATE
     Indication: ARTERIAL RUPTURE
     Dosage: 20 MG, 3X/DAY
     Route: 048
     Dates: start: 200801
  2. REVATIO [Suspect]
     Active Substance: SILDENAFIL CITRATE
     Indication: PULMONARY HYPERTENSION
     Dosage: 3 PILLS 3X/DAY
  3. REVATIO [Suspect]
     Active Substance: SILDENAFIL CITRATE
     Dosage: 20 MG, 3X/DAY
     Route: 048
     Dates: start: 200801
  4. REVATIO [Suspect]
     Active Substance: SILDENAFIL CITRATE
     Dosage: 4 DF, 3X/DAY
     Route: 048
     Dates: start: 2019
  5. REVATIO [Suspect]
     Active Substance: SILDENAFIL CITRATE
     Dosage: 80 MG, 3X/DAY
     Route: 048
  6. REVATIO [Suspect]
     Active Substance: SILDENAFIL CITRATE
     Dosage: 40 MG, 3X/DAY (TAKE 2 TABLETS (40 MG) THREE TIMES A DAY)
     Route: 048
  7. REVATIO [Suspect]
     Active Substance: SILDENAFIL CITRATE
     Indication: PULMONARY ARTERIAL HYPERTENSION
     Dosage: UNK
     Dates: start: 2007
  8. REVATIO [Suspect]
     Active Substance: SILDENAFIL CITRATE
     Dosage: 80 MG, 3X/DAY (4TABS THREE TIMES A DAY)
     Route: 048
     Dates: start: 2019
  9. REMODULIN [Concomitant]
     Active Substance: TREPROSTINIL
     Dosage: UNK
     Dates: start: 2009, end: 2010
  10. TRACLEER [Concomitant]
     Active Substance: BOSENTAN
     Indication: PULMONARY ARTERIAL HYPERTENSION
     Dosage: UNK
     Route: 048
     Dates: start: 200801
  11. REMODULIN [Concomitant]
     Active Substance: TREPROSTINIL
     Indication: PULMONARY HYPERTENSION
     Dosage: UNK
     Dates: start: 200807
  12. REMODULIN [Concomitant]
     Active Substance: TREPROSTINIL
     Indication: PULMONARY ARTERIAL HYPERTENSION
     Dosage: UNK
     Dates: start: 200808

REACTIONS (26)
  - Gastrointestinal disorder [Unknown]
  - Prescribed overdose [Unknown]
  - Oxygen saturation abnormal [Unknown]
  - Animal scratch [Recovered/Resolved with Sequelae]
  - Fluid retention [Unknown]
  - Fall [Unknown]
  - Terminal state [Not Recovered/Not Resolved]
  - Drug ineffective [Unknown]
  - Pain [Not Recovered/Not Resolved]
  - Animal bite [Recovered/Resolved with Sequelae]
  - Loss of personal independence in daily activities [Not Recovered/Not Resolved]
  - Intentional product misuse [Unknown]
  - Expired product administered [Unknown]
  - Dependence on oxygen therapy [Unknown]
  - Weight decreased [Recovering/Resolving]
  - Salivary hypersecretion [Unknown]
  - Angina pectoris [Unknown]
  - Pruritus [Not Recovered/Not Resolved]
  - Swelling [Not Recovered/Not Resolved]
  - Dyspnoea [Unknown]
  - Hip fracture [Recovered/Resolved with Sequelae]
  - Peripheral swelling [Not Recovered/Not Resolved]
  - Memory impairment [Unknown]
  - Herpes zoster [Recovered/Resolved with Sequelae]
  - Faeces discoloured [Unknown]
  - Dyspepsia [Unknown]

NARRATIVE: CASE EVENT DATE: 2015
